FAERS Safety Report 5624104-0 (Version None)
Quarter: 2008Q1

REPORT INFORMATION
  Report Type: 
  Country: None (occurrence: None)
  Receive Date: 20080213
  Receipt Date: 20070917
  Transmission Date: 20080703
  Serious: No
  Sender: FDA-Public Use
  Company Number: US-KINGPHARMUSA00001-K200701208

PATIENT

DRUGS (3)
  1. EPIPEN [Suspect]
     Indication: DRUG HYPERSENSITIVITY
     Dosage: .3 MG, SINGLE
     Dates: start: 20070907, end: 20070907
  2. CHANTIX [Concomitant]
     Dosage: 1 MG, BID
  3. CELEXA [Concomitant]
     Dosage: 20 MG, QD

REACTIONS (1)
  - MENSTRUATION DELAYED [None]
